FAERS Safety Report 5938581-9 (Version None)
Quarter: 2008Q4

REPORT INFORMATION
  Report Type: 
  Country: None (occurrence: None)
  Receive Date: 20081103
  Receipt Date: 20081030
  Transmission Date: 20090506
  Serious: Yes (Death)
  Sender: FDA-Public Use
  Company Number: PHHY2008CA26676

PATIENT

DRUGS (1)
  1. DIOVAN [Suspect]

REACTIONS (1)
  - COLON CANCER [None]
